FAERS Safety Report 20145252 (Version 1)
Quarter: 2021Q4

REPORT INFORMATION
  Report Type: Spontaneous
  Country: US (occurrence: US)
  Receive Date: 20211203
  Receipt Date: 20211203
  Transmission Date: 20220304
  Serious: No
  Sender: FDA-Public Use
  Company Number: US-BAYER-2021A259776

PATIENT
  Age: 81 Year
  Sex: Male

DRUGS (1)
  1. CLARITIN [Suspect]
     Active Substance: LORATADINE
     Indication: Product used for unknown indication
     Dosage: 1.5 DF
     Route: 048
     Dates: start: 20211130, end: 20211130

REACTIONS (8)
  - Nasal congestion [Unknown]
  - Insomnia [Unknown]
  - Drug hypersensitivity [Unknown]
  - Sinusitis [Unknown]
  - Drug ineffective [Unknown]
  - Wrong technique in product usage process [Recovered/Resolved]
  - Extra dose administered [Recovered/Resolved]
  - Product blister packaging issue [None]

NARRATIVE: CASE EVENT DATE: 20211130
